FAERS Safety Report 18878063 (Version 1)
Quarter: 2021Q1

REPORT INFORMATION
  Report Type: Spontaneous
  Country: US (occurrence: US)
  Receive Date: 20210210
  Receipt Date: 20210210
  Transmission Date: 20210420
  Serious: Yes (Hospitalization)
  Sender: FDA-Public Use
  Company Number: None

PATIENT
  Age: 73 Year
  Sex: Male
  Weight: 118 kg

DRUGS (1)
  1. ALLOPURINOL (ALLOPURINOL 100MG TAB) [Suspect]
     Active Substance: ALLOPURINOL
     Route: 048
     Dates: start: 20210105, end: 20210126

REACTIONS (2)
  - Hypokalaemia [None]
  - Acute kidney injury [None]

NARRATIVE: CASE EVENT DATE: 20210108
